FAERS Safety Report 13036228 (Version 8)
Quarter: 2019Q1

REPORT INFORMATION
  Report Type: Report from Study
  Country: None (occurrence: HU)
  Receive Date: 20161216
  Receipt Date: 20190214
  Transmission Date: 20190417
  Serious: Yes (Death, Life-Threatening, Hospitalization, Disabling, Other)
  Sender: FDA-Public Use
  Company Number: HU-ABBVIE-16P-076-1808594-00

PATIENT
  Age: 63 Year
  Sex: Male
  Weight: 64 kg

DRUGS (6)
  1. DUODOPA [Suspect]
     Active Substance: CARBIDOPA\LEVODOPA
     Indication: PARKINSON^S DISEASE
     Dosage: TITRATION: DOSING AT END OF TITRATION: MD: 12 ML, CD:1.8 ML/H, ED: 1/D, 16 HR
     Route: 050
     Dates: start: 20160720, end: 20160722
  2. DUODOPA [Suspect]
     Active Substance: CARBIDOPA\LEVODOPA
     Route: 050
     Dates: start: 20161018, end: 20170103
  3. CONCOR [Concomitant]
     Active Substance: BISOPROLOL FUMARATE
     Indication: ATRIAL FIBRILLATION
     Dosage: 1-0-1/2
     Route: 048
     Dates: start: 201605, end: 201612
  4. RAWEL SR [Concomitant]
     Indication: HYPERTENSION
     Route: 048
     Dates: start: 2000, end: 20161201
  5. STALEVO [Concomitant]
     Active Substance: CARBIDOPA\ENTACAPONE\LEVODOPA
     Indication: PARKINSON^S DISEASE
     Dosage: 100/25/200 MG
     Route: 048
     Dates: start: 201006, end: 20161025
  6. ELIQUIS [Concomitant]
     Active Substance: APIXABAN
     Indication: ATRIAL FIBRILLATION
     Route: 048
     Dates: start: 201610, end: 20161210

REACTIONS (23)
  - Fall [Fatal]
  - Vomiting [Not Recovered/Not Resolved]
  - Oesophagitis [Unknown]
  - Head injury [Fatal]
  - Fungal oesophagitis [Unknown]
  - Anaemia [Unknown]
  - Faeces discoloured [Not Recovered/Not Resolved]
  - Incontinence [Not Recovered/Not Resolved]
  - Cardiac failure [Fatal]
  - Loss of consciousness [Fatal]
  - Hydrothorax [Recovering/Resolving]
  - Device kink [Recovered/Resolved]
  - Gastrointestinal haemorrhage [Unknown]
  - Coronary artery disease [Fatal]
  - Sudden death [Fatal]
  - Diaphragmatic hernia [Recovered/Resolved]
  - Asthenia [Not Recovered/Not Resolved]
  - Nausea [Not Recovered/Not Resolved]
  - Impaired gastric emptying [Unknown]
  - Diarrhoea [Not Recovered/Not Resolved]
  - Mobility decreased [Not Recovered/Not Resolved]
  - Oedema peripheral [Recovering/Resolving]
  - International normalised ratio increased [Unknown]

NARRATIVE: CASE EVENT DATE: 2016
